FAERS Safety Report 8518428-7 (Version None)
Quarter: 2012Q3

REPORT INFORMATION
  Report Type: 
  Country: None (occurrence: None)
  Receive Date: 20120718
  Receipt Date: 20120223
  Transmission Date: 20120928
  Serious: No
  Sender: FDA-Public Use
  Company Number: US-BRISTOL-MYERS SQUIBB COMPANY-16415903

PATIENT
  Age: 61 Year
  Sex: Female

DRUGS (1)
  1. COUMADIN [Suspect]
     Dosage: 7.5MG ON 21FEB2012,LOT#1A69294B,EXP DATE:FEB2014 3MG ON 22FEB2012
     Dates: start: 20120220

REACTIONS (1)
  - RASH PRURITIC [None]
